FAERS Safety Report 21896067 (Version 2)
Quarter: 2023Q1

REPORT INFORMATION
  Report Type: Spontaneous
  Country: GB (occurrence: GB)
  Receive Date: 20230123
  Receipt Date: 20230324
  Transmission Date: 20230418
  Serious: Yes (Hospitalization, Other)
  Sender: FDA-Public Use
  Company Number: None

PATIENT
  Age: 10 Year
  Sex: Male

DRUGS (1)
  1. MIRTAZAPINE [Suspect]
     Active Substance: MIRTAZAPINE
     Dosage: EVERY MORNING

REACTIONS (5)
  - Malaise [Recovering/Resolving]
  - Somnolence [Recovering/Resolving]
  - Hospitalisation [Recovered/Resolved]
  - Product dispensing error [Unknown]
  - Medication error [Unknown]
